FAERS Safety Report 9831620 (Version 1)
Quarter: 2014Q1

REPORT INFORMATION
  Report Type: Spontaneous
  Country: US (occurrence: US)
  Receive Date: 20140121
  Receipt Date: 20140121
  Transmission Date: 20141002
  Serious: No
  Sender: FDA-Public Use
  Company Number: US-PFIZER INC-2014016656

PATIENT
  Sex: Female

DRUGS (2)
  1. LYRICA [Suspect]
     Indication: BURNS SECOND DEGREE
     Dosage: UNK
  2. LYRICA [Suspect]
     Indication: BURNS THIRD DEGREE

REACTIONS (4)
  - Off label use [Unknown]
  - Fatigue [Unknown]
  - Influenza [Unknown]
  - Body temperature increased [Unknown]
